FAERS Safety Report 8858946 (Version 2)
Quarter: 2012Q4

REPORT INFORMATION
  Report Type: 
  Country: US (occurrence: US)
  Receive Date: 20121024
  Receipt Date: 20121203
  Transmission Date: 20130627
  Serious: No
  Sender: FDA-Public Use
  Company Number: US-PFIZER INC-2012261921

PATIENT
  Age: 83 Year
  Sex: Female
  Weight: 56.69 kg

DRUGS (1)
  1. REVATIO [Suspect]
     Indication: LUNG DISORDER
     Dosage: 20 mg, 3x/day
     Dates: start: 2011

REACTIONS (1)
  - Malaise [Unknown]
